FAERS Safety Report 6051405-7 (Version None)
Quarter: 2009Q1

REPORT INFORMATION
  Report Type: 
  Country: None (occurrence: None)
  Receive Date: 20090126
  Receipt Date: 20090113
  Transmission Date: 20090719
  Serious: Yes (Other)
  Sender: FDA-Public Use
  Company Number: US-BAYER-200836696NA

PATIENT
  Age: 87 Year
  Sex: Female

DRUGS (2)
  1. AVELOX [Suspect]
     Indication: DRUG USE FOR UNKNOWN INDICATION
     Dosage: TOTAL DAILY DOSE: 400 MG  UNIT DOSE: 400 MG
     Route: 048
  2. SYNTHROID [Concomitant]

REACTIONS (6)
  - DIZZINESS [None]
  - HYPERSENSITIVITY [None]
  - MALAISE [None]
  - SPEECH DISORDER [None]
  - SWOLLEN TONGUE [None]
  - UNEVALUABLE EVENT [None]
